FAERS Safety Report 6030872-9 (Version None)
Quarter: 2009Q1

REPORT INFORMATION
  Report Type: 
  Country: None (occurrence: None)
  Receive Date: 20090106
  Receipt Date: 20090102
  Transmission Date: 20090719
  Serious: Yes (Hospitalization)
  Sender: FDA-Public Use
  Company Number: KV200801128

PATIENT
  Age: 70 Year
  Sex: Female
  Weight: 57.6 kg

DRUGS (1)
  1. ISOSORBIDE MONONITRATE [Suspect]
     Indication: CHEST PAIN
     Dosage: 30 MG, QD, ORAL
     Route: 048
     Dates: start: 20080901, end: 20081201

REACTIONS (5)
  - ABDOMINAL PAIN UPPER [None]
  - CHEST PAIN [None]
  - GASTROINTESTINAL DISORDER [None]
  - HEADACHE [None]
  - PRODUCT QUALITY ISSUE [None]
